FAERS Safety Report 5607301-X (Version None)
Quarter: 2008Q1

REPORT INFORMATION
  Report Type: 
  Country: None (occurrence: None)
  Receive Date: 20080130
  Receipt Date: 20080124
  Transmission Date: 20080703
  Serious: Yes (Other)
  Sender: FDA-Public Use
  Company Number: US-JNJFOC-20080106096

PATIENT
  Sex: Female

DRUGS (1)
  1. DOXIL [Suspect]
     Indication: OVARIAN CANCER RECURRENT
     Route: 042

REACTIONS (4)
  - CARBOHYDRATE ANTIGEN 125 INCREASED [None]
  - METASTASES TO PERITONEUM [None]
  - PLANTAR ERYTHEMA [None]
  - SMALL INTESTINAL OBSTRUCTION [None]
